FAERS Safety Report 12288743 (Version 1)
Quarter: 2016Q2

REPORT INFORMATION
  Report Type: Spontaneous
  Country: GB (occurrence: GB)
  Receive Date: 20160421
  Receipt Date: 20160421
  Transmission Date: 20160815
  Serious: Yes (Life-Threatening, Hospitalization)
  Sender: FDA-Public Use
  Company Number: GB-ACCORD-039702

PATIENT
  Age: 44 Year
  Sex: Male
  Weight: 82 kg

DRUGS (11)
  1. EPILIM [Interacting]
     Active Substance: VALPROATE SODIUM
     Indication: HYPOMANIA
     Dosage: UNSURE BUT MAYBE IN THE RANGE OF 0.5-1G DAILY
     Route: 048
     Dates: start: 20160217
  2. PHENERGAN [Interacting]
     Active Substance: PROMETHAZINE HYDROCHLORIDE
     Indication: AGITATION
     Dosage: UNSURE, PERHAPS 25 MG DAILY
     Route: 048
     Dates: start: 20160217
  3. CLONAZEPAM. [Suspect]
     Active Substance: CLONAZEPAM
     Indication: AGITATION
     Dosage: IN FOUR DOSES
     Route: 048
     Dates: start: 20160217
  4. REDOXON MULTIVITAMIN 1 [Concomitant]
  5. FISH OIL [Concomitant]
     Active Substance: FISH OIL
  6. OLANZAPINE. [Interacting]
     Active Substance: OLANZAPINE
     Indication: HYPOMANIA
     Dosage: AT NIGHT
     Route: 048
     Dates: start: 20160217
  7. PROMETHAZINE [Interacting]
     Active Substance: PROMETHAZINE\PROMETHAZINE HYDROCHLORIDE
     Indication: PRODUCT USED FOR UNKNOWN INDICATION
     Route: 048
     Dates: start: 20160217
  8. FLUCLOXACILLIN [Concomitant]
     Active Substance: FLUCLOXACILLIN
     Dates: start: 20160401
  9. INNOHEP [Concomitant]
     Active Substance: TINZAPARIN SODIUM
  10. ACETYLSALICYLIC ACID [Concomitant]
     Active Substance: ASPIRIN
  11. HALOPERIDOL. [Concomitant]
     Active Substance: HALOPERIDOL

REACTIONS (12)
  - Reaction to drug excipients [Unknown]
  - Drug interaction [Unknown]
  - Pruritus [Unknown]
  - Oedema peripheral [Unknown]
  - Liver injury [Not Recovered/Not Resolved]
  - Aggression [Not Recovered/Not Resolved]
  - Drug hypersensitivity [Not Recovered/Not Resolved]
  - Breathing-related sleep disorder [Unknown]
  - Localised infection [Unknown]
  - Verbal abuse [Not Recovered/Not Resolved]
  - Rash maculo-papular [Unknown]
  - Cerebrovascular accident [Unknown]

NARRATIVE: CASE EVENT DATE: 20160217
